FAERS Safety Report 23507121 (Version 1)
Quarter: 2024Q1

REPORT INFORMATION
  Report Type: Spontaneous
  Country: US (occurrence: US)
  Receive Date: 20240209
  Receipt Date: 20240209
  Transmission Date: 20240410
  Serious: Yes (Hospitalization, Other)
  Sender: FDA-Public Use
  Company Number: US-SANDOZ-SDZ2024US012721

PATIENT
  Sex: Female

DRUGS (2)
  1. CARVEDILOL [Suspect]
     Active Substance: CARVEDILOL
     Indication: Product used for unknown indication
     Dosage: UNK
     Route: 065
  2. ENTRESTO [Suspect]
     Active Substance: SACUBITRIL\VALSARTAN
     Indication: Product used for unknown indication
     Dosage: 97/103 MG, BID
     Route: 065

REACTIONS (8)
  - Internal haemorrhage [Recovering/Resolving]
  - Atrial fibrillation [Unknown]
  - Implantable defibrillator insertion [Unknown]
  - Back pain [Unknown]
  - Panic attack [Unknown]
  - Blood pressure increased [Unknown]
  - Headache [Unknown]
  - Hypotension [Recovering/Resolving]
